FAERS Safety Report 5160125-2 (Version None)
Quarter: 2006Q4

REPORT INFORMATION
  Report Type: 
  Country: None (occurrence: None)
  Receive Date: 20061129
  Receipt Date: 20061120
  Transmission Date: 20070319
  Serious: Yes (Hospitalization)
  Sender: FDA-Public Use
  Company Number: 2006CG01900

PATIENT
  Age: 50 Year
  Sex: Male
  Weight: 95 kg

DRUGS (6)
  1. NEXIUM [Suspect]
     Indication: PROPHYLAXIS
     Route: 048
  2. SOLUPRED [Interacting]
     Indication: PROPHYLAXIS
     Route: 048
  3. TRIFLUCAN [Interacting]
     Indication: GASTROENTERITIS SALMONELLA
     Route: 048
     Dates: start: 20061016, end: 20061019
  4. CLAMOXYL [Interacting]
     Indication: ANTIBIOTIC PROPHYLAXIS
     Route: 048
  5. COUMADIN [Interacting]
     Indication: COAGULOPATHY
     Route: 048
     Dates: start: 20010901, end: 20061019
  6. COUMADIN [Interacting]
     Route: 048
     Dates: start: 20060101

REACTIONS (2)
  - DRUG INTERACTION [None]
  - INTERNATIONAL NORMALISED RATIO INCREASED [None]
